FAERS Safety Report 6964071-0 (Version None)
Quarter: 2010Q3

REPORT INFORMATION
  Report Type: 
  Country: None (occurrence: None)
  Receive Date: 20100831
  Receipt Date: 20100825
  Transmission Date: 20110219
  Serious: Yes (Death, Other)
  Sender: FDA-Public Use
  Company Number: 2010US003188

PATIENT
  Age: 49 Year
  Sex: Female

DRUGS (2)
  1. AMBISOME [Suspect]
     Indication: CEREBRAL ASPERGILLOSIS
     Dosage: 75 MG, IV NOS
     Route: 042
     Dates: start: 20100625, end: 20100701
  2. EXJADE [Suspect]
     Indication: PRODUCT USED FOR UNKNOWN INDICATION
     Dosage: 1500 MG, ORAL
     Route: 048
     Dates: start: 20100629, end: 20100704

REACTIONS (4)
  - OBLITERATIVE BRONCHIOLITIS [None]
  - RENAL FAILURE [None]
  - RESPIRATORY FAILURE [None]
  - TRACHEOMALACIA [None]
